FAERS Safety Report 10777589 (Version 1)
Quarter: 2015Q1

REPORT INFORMATION
  Report Type: Spontaneous
  Country: DE (occurrence: DE)
  Receive Date: 20150209
  Receipt Date: 20150209
  Transmission Date: 20150721
  Serious: Yes (Death)
  Sender: FDA-Public Use
  Company Number: DE-ABBVIE-15P-062-1344389-00

PATIENT
  Sex: Male

DRUGS (1)
  1. DUODOPA [Suspect]
     Active Substance: CARBIDOPA\LEVODOPA
     Indication: PARKINSON^S DISEASE
     Dosage: MD 12.0ML, CRD 4.8ML/H, ED 2.0ML
     Route: 050
     Dates: start: 20110117

REACTIONS (1)
  - General physical health deterioration [Fatal]
